FAERS Safety Report 5550141-0 (Version None)
Quarter: 2007Q4

REPORT INFORMATION
  Report Type: 
  Country: None (occurrence: None)
  Receive Date: 20071212
  Receipt Date: 20071129
  Transmission Date: 20080405
  Serious: Yes (Hospitalization)
  Sender: FDA-Public Use
  Company Number: IL-AMGEN-UK254747

PATIENT
  Age: 50 Year
  Sex: Male

DRUGS (10)
  1. NEULASTIM [Suspect]
     Indication: CHEMOTHERAPY
     Route: 058
     Dates: start: 20071011
  2. ETOPOSIDE [Concomitant]
     Dates: start: 20071008
  3. CISPLATIN [Concomitant]
     Dates: start: 20071001, end: 20071001
  4. CARBOPLATIN [Concomitant]
     Dates: start: 20071030
  5. ATENOLOL [Concomitant]
  6. ASPIRIN [Concomitant]
  7. ATORVASTATIN [Concomitant]
  8. LANSOPRAZOLE [Concomitant]
  9. OXYCONTIN [Concomitant]
  10. DOXAZOSIN MESYLATE [Concomitant]

REACTIONS (7)
  - ADVERSE EVENT [None]
  - CONVULSION [None]
  - DIZZINESS [None]
  - LEUKOCYTOSIS [None]
  - NAUSEA [None]
  - SYNCOPE [None]
  - VOMITING [None]
